FAERS Safety Report 10654418 (Version 1)
Quarter: 2014Q4

REPORT INFORMATION
  Report Type: Spontaneous
  Country: US (occurrence: None)
  Receive Date: 20141215
  Receipt Date: 20141215
  Transmission Date: 20150529
  Serious: Yes (Hospitalization)
  Sender: FDA-Public Use
  Company Number: None

PATIENT
  Age: 87 Year
  Sex: Male

DRUGS (1)
  1. ZELBORAF [Suspect]
     Active Substance: VEMURAFENIB
     Indication: MALIGNANT MELANOMA
     Dosage: 960MG, TWICE DAILY, BY MOUTH
     Route: 048
     Dates: start: 201407, end: 201410

REACTIONS (3)
  - Dyspnoea [None]
  - Skin papilloma [None]
  - Pericardial effusion [None]

NARRATIVE: CASE EVENT DATE: 20141010
